FAERS Safety Report 4936303-1 (Version None)
Quarter: 2006Q1

REPORT INFORMATION
  Report Type: 
  Country: None (occurrence: None)
  Receive Date: 20060127
  Receipt Date: 20051128
  Transmission Date: 20060701
  Serious: Yes (Other)
  Sender: FDA-Public Use
  Company Number: 2005162756

PATIENT
  Sex: Female

DRUGS (7)
  1. LYRICA [Suspect]
     Indication: DIABETIC NEUROPATHY
     Dosage: 3 IN 1 D
     Dates: start: 20051001
  2. DARVOCET [Suspect]
     Indication: ILL-DEFINED DISORDER
  3. XANAX [Concomitant]
  4. NEURONTIN [Concomitant]
  5. KEPPRA [Concomitant]
  6. ZONISAMIDE [Concomitant]
  7. INSULIN [Concomitant]

REACTIONS (6)
  - DISORIENTATION [None]
  - DIZZINESS [None]
  - FATIGUE [None]
  - HALLUCINATION [None]
  - NAUSEA [None]
  - VISION BLURRED [None]
